FAERS Safety Report 8432034-4 (Version None)
Quarter: 2012Q2

REPORT INFORMATION
  Report Type: 
  Country: None (occurrence: None)
  Receive Date: 20120606
  Receipt Date: 20120528
  Transmission Date: 20120825
  Serious: Yes (Hospitalization, Other)
  Sender: FDA-Public Use
  Company Number: AUR-APL-2012-02456

PATIENT
  Age: 63 Year
  Sex: Female

DRUGS (3)
  1. ATORVASTATIN [Concomitant]
  2. PAROXETINE HCL [Suspect]
     Indication: PRODUCT USED FOR UNKNOWN INDICATION
     Dosage: (40 MG),
  3. QUETIAPINE FUMARATE [Suspect]
     Indication: PRODUCT USED FOR UNKNOWN INDICATION
     Dosage: (800 MG), ORAL
     Route: 048

REACTIONS (13)
  - ABNORMAL BEHAVIOUR [None]
  - GASTROINTESTINAL HAEMORRHAGE [None]
  - BLOOD GLUCOSE INCREASED [None]
  - ASPARTATE AMINOTRANSFERASE INCREASED [None]
  - COGNITIVE DISORDER [None]
  - BLOOD POTASSIUM DECREASED [None]
  - MOOD ALTERED [None]
  - DISORIENTATION [None]
  - ANAEMIA [None]
  - PNEUMONIA [None]
  - ELECTROCARDIOGRAM QT PROLONGED [None]
  - DELIRIUM [None]
  - CONFUSIONAL STATE [None]
